FAERS Safety Report 5092394-1 (Version None)
Quarter: 2006Q3

REPORT INFORMATION
  Report Type: 
  Country: None (occurrence: None)
  Receive Date: 20060825
  Receipt Date: 20060811
  Transmission Date: 20061208
  Serious: Yes (Other)
  Sender: FDA-Public Use
  Company Number: US200608003401

PATIENT
  Age: 86 Year
  Sex: Female

DRUGS (3)
  1. FORTEO [Suspect]
     Indication: OSTEOPOROSIS
     Dates: start: 20051016
  2. FORTEO [Concomitant]
  3. CITRACAL (CALCIUM CITRATE) [Concomitant]

REACTIONS (5)
  - ASTHENIA [None]
  - BLOOD CALCIUM INCREASED [None]
  - MUSCLE SPASMS [None]
  - PELVIC FRACTURE [None]
  - PHARMACEUTICAL PRODUCT COMPLAINT [None]
